FAERS Safety Report 11796282 (Version 1)
Quarter: 2015Q4

REPORT INFORMATION
  Report Type: Spontaneous
  Country: US (occurrence: None)
  Receive Date: 20151202
  Receipt Date: 20151202
  Transmission Date: 20160305
  Serious: Yes (Life-Threatening, Hospitalization)
  Sender: FDA-Public Use
  Company Number: None

PATIENT
  Age: 42 Year
  Sex: Male
  Weight: 100 kg

DRUGS (1)
  1. CEFTRIAXONE. [Suspect]
     Active Substance: CEFTRIAXONE
     Indication: BACTERAEMIA
     Route: 042
     Dates: start: 20151015, end: 20151015

REACTIONS (9)
  - Tachycardia [None]
  - Cardio-respiratory arrest [None]
  - Dyspnoea [None]
  - Substance abuse [None]
  - Neurogenic bladder [None]
  - Septic shock [None]
  - Deep vein thrombosis [None]
  - Hypotension [None]
  - Urinary tract infection [None]

NARRATIVE: CASE EVENT DATE: 20151015
